FAERS Safety Report 14525534 (Version 1)
Quarter: 2018Q1

REPORT INFORMATION
  Report Type: Spontaneous
  Country: US (occurrence: US)
  Receive Date: 20180213
  Receipt Date: 20180213
  Transmission Date: 20180509
  Serious: Yes (Other)
  Sender: FDA-Public Use
  Company Number: US-EMD SERONO-9010808

PATIENT
  Age: 48 Year
  Sex: Female

DRUGS (1)
  1. REBIF [Suspect]
     Active Substance: INTERFERON BETA-1A
     Indication: MULTIPLE SCLEROSIS
     Route: 058
     Dates: start: 201609

REACTIONS (4)
  - Alopecia [Unknown]
  - Hepatic enzyme increased [Unknown]
  - Skin exfoliation [Unknown]
  - Liver disorder [Unknown]

NARRATIVE: CASE EVENT DATE: 201801
